FAERS Safety Report 5310687-7 (Version None)
Quarter: 2007Q2

REPORT INFORMATION
  Report Type: 
  Country: None (occurrence: None)
  Receive Date: 20070428
  Receipt Date: 20070417
  Transmission Date: 20071010
  Serious: Yes (Other)
  Sender: FDA-Public Use
  Company Number: US-PFIZER INC-2007031076

PATIENT
  Age: 63 Year
  Sex: Female

DRUGS (6)
  1. NORVASC [Suspect]
  2. LANTUS [Suspect]
     Indication: DIABETES MELLITUS INSULIN-DEPENDENT
     Dates: start: 20070101
  3. INSULIN GLULISINE [Concomitant]
  4. XANAX [Concomitant]
  5. PLAVIX [Concomitant]
  6. DEPAKOTE [Concomitant]

REACTIONS (2)
  - HYPOTENSION [None]
  - LOSS OF CONSCIOUSNESS [None]
